FAERS Safety Report 7557272-4 (Version None)
Quarter: 2011Q2

REPORT INFORMATION
  Report Type: 
  Country: None (occurrence: None)
  Receive Date: 20110620
  Receipt Date: 20080107
  Transmission Date: 20111010
  Serious: Yes (Other)
  Sender: FDA-Public Use
  Company Number: PHHY2008BR13542

PATIENT
  Sex: Female
  Weight: 62 kg

DRUGS (4)
  1. FORMOTEROL FUMARATE [Suspect]
     Dosage: 1 DF, Q12H
     Dates: start: 20080101
  2. FORMOTEROL FUMARATE [Suspect]
     Dosage: 1 DF/DAY
  3. FORMOTEROL FUMARATE [Suspect]
     Dosage: TWICE IN 2007
     Dates: start: 20070101
  4. FORMOTEROL FUMARATE [Suspect]
     Indication: ASTHMA
     Dosage: PRN

REACTIONS (4)
  - NORMAL NEWBORN [None]
  - PREMATURE RUPTURE OF MEMBRANES [None]
  - DELAYED DELIVERY [None]
  - DRUG EXPOSURE DURING PREGNANCY [None]
